FAERS Safety Report 22280217 (Version 2)
Quarter: 2023Q4

REPORT INFORMATION
  Report Type: Spontaneous
  Country: US (occurrence: US)
  Receive Date: 20230503
  Receipt Date: 20231023
  Transmission Date: 20240110
  Serious: No
  Sender: FDA-Public Use
  Company Number: US-INSUD PHARMA-2304US02591

PATIENT

DRUGS (1)
  1. SLYND [Suspect]
     Active Substance: DROSPIRENONE
     Indication: Contraception
     Dosage: UNK
     Route: 048
     Dates: start: 202303

REACTIONS (5)
  - Heavy menstrual bleeding [Not Recovered/Not Resolved]
  - Vaginal discharge [Recovered/Resolved]
  - Intermenstrual bleeding [Recovered/Resolved]
  - Intentional dose omission [Unknown]
  - Product dose omission issue [Recovered/Resolved]

NARRATIVE: CASE EVENT DATE: 20230101
